FAERS Safety Report 4629872-2 (Version None)
Quarter: 2005Q2

REPORT INFORMATION
  Report Type: 
  Country: None (occurrence: None)
  Receive Date: 20050407
  Receipt Date: 20050324
  Transmission Date: 20051028
  Serious: Yes (Hospitalization)
  Sender: FDA-Public Use
  Company Number: 2005042086

PATIENT
  Age: 56 Year
  Sex: Male

DRUGS (9)
  1. VIRACEPT [Suspect]
     Indication: HIV INFECTION
     Dosage: ORAL
     Route: 048
     Dates: start: 20030425
  2. DIDANOSINE [Suspect]
     Indication: HIV INFECTION
     Dosage: 400 MG (1 IN 1 D), ORAL
     Route: 048
     Dates: start: 20020716, end: 20030409
  3. LAMIVUDINE [Suspect]
     Indication: HIV INFECTION
     Dosage: 300 MG (150 MG, 2 IN 1 D), ORAL
     Route: 048
     Dates: start: 20010208, end: 20030409
  4. ABACAVIR (ABACAVIR) [Suspect]
     Indication: HIV INFECTION
     Dosage: 600 MG (1 IN 1 D), ORAL
     Route: 048
     Dates: start: 20010406, end: 20030409
  5. EFAVIRENZ (EFAVIRENZ) [Suspect]
     Indication: HIV INFECTION
     Dosage: 600 MG (1 IN 1 D), ORAL
     Route: 048
     Dates: start: 20010323
  6. KALETRA [Suspect]
     Indication: HIV INFECTION
     Dosage: ORAL
     Route: 048
     Dates: start: 20020513, end: 20020715
  7. TENOFOVIR DISOPROXIL FUMARATE (TENOFOVIR DISOPROXIL FUMARATE) [Concomitant]
  8. ALL OTHER THERAPETIC PRODUCTS (ALL OTHER THERAPEUTIC PRODUCTS) [Concomitant]
  9. BACTRIM [Concomitant]

REACTIONS (10)
  - ACTIVITIES OF DAILY LIVING IMPAIRED [None]
  - ARRHYTHMIA [None]
  - BRADYCARDIA [None]
  - ELECTROCARDIOGRAM R ON T PHENOMENON [None]
  - EXTRASYSTOLES [None]
  - PALPITATIONS [None]
  - SICK SINUS SYNDROME [None]
  - SINOATRIAL BLOCK [None]
  - SINUS ARREST [None]
  - VENTRICULAR EXTRASYSTOLES [None]
